FAERS Safety Report 6388461-2 (Version None)
Quarter: 2009Q4

REPORT INFORMATION
  Report Type: 
  Country: None (occurrence: None)
  Receive Date: 20091005
  Receipt Date: 20090929
  Transmission Date: 20100525
  Serious: Yes (Other)
  Sender: FDA-Public Use
  Company Number: A0809548A

PATIENT
  Age: 71 Year
  Sex: Female

DRUGS (8)
  1. ADVAIR DISKUS 100/50 [Suspect]
     Indication: ASTHMA
     Route: 055
     Dates: start: 19990101
  2. PROAIR HFA [Concomitant]
  3. FLECAINIDE ACETATE [Concomitant]
  4. DIOVAN [Concomitant]
  5. FLUTICASONE NASAL [Concomitant]
  6. SYNTHROID [Concomitant]
  7. WARFARIN [Concomitant]
  8. PRAVASTATIN [Concomitant]

REACTIONS (3)
  - ASTHMA [None]
  - DYSPNOEA [None]
  - WHEEZING [None]
